FAERS Safety Report 9168057 (Version 2)
Quarter: 2013Q1

REPORT INFORMATION
  Report Type: Spontaneous
  Country: US (occurrence: None)
  Receive Date: 20130227
  Receipt Date: 20130312
  Transmission Date: 20140127
  Serious: Yes (Other)
  Sender: FDA-Public Use
  Company Number: 2013034816

PATIENT
  Age: 43 Year
  Sex: Female

DRUGS (3)
  1. HUMAN IMMUNOGLOBULIN G [Suspect]
     Indication: DERMATOMYOSITIS
     Dosage: (2 G/KG/MONTH)
  2. PREDNISONE (PREDNISONE) [Suspect]
  3. METHYLPREDNISOLONE [Suspect]
     Dosage: (1 G/WEEK FOR 8 WEEKS)

REACTIONS (19)
  - Weight increased [None]
  - Blood glucose increased [None]
  - Blood creatine phosphokinase increased [None]
  - Atrophy [None]
  - Inflammation [None]
  - Off label use [None]
  - Pregnancy [None]
  - Exposure during pregnancy [None]
  - Gait disturbance [None]
  - Muscular weakness [None]
  - Headache [None]
  - Pyrexia [None]
  - Malaise [None]
  - Myalgia [None]
  - Dermatomyositis [None]
  - Condition aggravated [None]
  - Drug ineffective [None]
  - Rash erythematous [None]
  - Arthralgia [None]
